FAERS Safety Report 5480210-5 (Version None)
Quarter: 2007Q4

REPORT INFORMATION
  Report Type: 
  Country: None (occurrence: None)
  Receive Date: 20071009
  Receipt Date: 20070928
  Transmission Date: 20080405
  Serious: Yes (Hospitalization)
  Sender: FDA-Public Use
  Company Number: US-AMGEN-US245325

PATIENT
  Sex: Female

DRUGS (1)
  1. SENSIPAR [Suspect]
     Indication: HYPERPARATHYROIDISM SECONDARY
     Dates: start: 20070101, end: 20070925

REACTIONS (4)
  - EYE SWELLING [None]
  - HYPERKALAEMIA [None]
  - LACRIMATION INCREASED [None]
  - OCULAR HYPERAEMIA [None]
